FAERS Safety Report 5691152-4 (Version None)
Quarter: 2008Q2

REPORT INFORMATION
  Report Type: 
  Country: None (occurrence: None)
  Receive Date: 20080402
  Receipt Date: 20080325
  Transmission Date: 20081010
  Serious: Yes (Death, Other)
  Sender: FDA-Public Use
  Company Number: SE-RB-000600-08

PATIENT
  Sex: Male

DRUGS (3)
  1. SUBUTEX [Suspect]
     Dosage: DOSAGE UNKNOWN
     Route: 060
     Dates: start: 20020101
  2. SUBUTEX [Suspect]
     Route: 060
     Dates: start: 20030101
  3. SUBUTEX [Suspect]
     Route: 060
     Dates: start: 20060101, end: 20070901

REACTIONS (3)
  - ARTERIOSCLEROSIS CORONARY ARTERY [None]
  - DEATH [None]
  - PAIN [None]
